FAERS Safety Report 4503472-7 (Version None)
Quarter: 2004Q4

REPORT INFORMATION
  Report Type: 
  Country: None (occurrence: None)
  Receive Date: 20041112
  Receipt Date: 20041015
  Transmission Date: 20050328
  Serious: Yes (Hospitalization)
  Sender: FDA-Public Use
  Company Number: ZONI002014

PATIENT
  Age: 43 Year
  Sex: Female

DRUGS (11)
  1. EXCEGRAN (ZONISAMIDE) [Suspect]
     Indication: CONVULSION
     Dosage: 300 MG, ORAL
     Route: 048
     Dates: start: 20020908, end: 20020917
  2. DEPAKENE [Suspect]
     Dosage: ORAL
     Route: 048
     Dates: start: 20021003, end: 20021005
  3. PHENOBARBITAL TAB [Concomitant]
  4. TIENAM (TIENAM) [Concomitant]
  5. PANSPORIN (CEFOTIAM HYDROCHLORIDE) [Concomitant]
  6. CLONAZEPAM [Concomitant]
  7. HALOPERIDOL [Concomitant]
  8. DIAZEPAM [Concomitant]
  9. LENDORM [Concomitant]
  10. SAXIZON (HYDROCORTISONE SODIUM SUCCINATE) [Concomitant]
  11. BETAMETHASONE [Concomitant]

REACTIONS (13)
  - CONVULSION [None]
  - DRUG HYPERSENSITIVITY [None]
  - HEPATIC FUNCTION ABNORMAL [None]
  - HUMAN HERPES VIRUS 6 SEROLOGY POSITIVE [None]
  - LOSS OF CONSCIOUSNESS [None]
  - LYMPHADENOPATHY [None]
  - LYMPHOCYTE MORPHOLOGY ABNORMAL [None]
  - LYMPHOCYTE STIMULATION TEST POSITIVE [None]
  - MULTI-ORGAN FAILURE [None]
  - PYREXIA [None]
  - RASH GENERALISED [None]
  - SKIN DESQUAMATION [None]
  - WHITE BLOOD CELL COUNT INCREASED [None]
